FAERS Safety Report 22391941 (Version 1)
Quarter: 2023Q2

REPORT INFORMATION
  Report Type: Other
  Country: JP (occurrence: JP)
  Receive Date: 20230601
  Receipt Date: 20230601
  Transmission Date: 20230721
  Serious: Yes (Hospitalization)
  Sender: FDA-Public Use
  Company Number: JP-CHUGAI-A2020048668ROCHE

PATIENT
  Age: 66 Year
  Sex: Male
  Weight: 91 kg

DRUGS (22)
  1. OBINUTUZUMAB [Suspect]
     Active Substance: OBINUTUZUMAB
     Indication: Follicular lymphoma
     Route: 041
     Dates: start: 20200408, end: 20200408
  2. OBINUTUZUMAB [Suspect]
     Active Substance: OBINUTUZUMAB
     Route: 041
     Dates: start: 20200415, end: 20200415
  3. OBINUTUZUMAB [Suspect]
     Active Substance: OBINUTUZUMAB
     Route: 041
     Dates: start: 20200422, end: 20200422
  4. OBINUTUZUMAB [Suspect]
     Active Substance: OBINUTUZUMAB
     Route: 041
     Dates: start: 20200507, end: 20200507
  5. OBINUTUZUMAB [Suspect]
     Active Substance: OBINUTUZUMAB
     Route: 041
     Dates: start: 20200604, end: 20200604
  6. OBINUTUZUMAB [Suspect]
     Active Substance: OBINUTUZUMAB
     Route: 041
     Dates: start: 20200709, end: 20200709
  7. OBINUTUZUMAB [Suspect]
     Active Substance: OBINUTUZUMAB
     Route: 041
     Dates: start: 20200813, end: 20200813
  8. OBINUTUZUMAB [Suspect]
     Active Substance: OBINUTUZUMAB
     Route: 041
     Dates: start: 20200917
  9. OBINUTUZUMAB [Suspect]
     Active Substance: OBINUTUZUMAB
     Route: 041
     Dates: start: 20201119, end: 20201119
  10. OBINUTUZUMAB [Suspect]
     Active Substance: OBINUTUZUMAB
     Route: 041
     Dates: start: 20210114, end: 20210114
  11. OBINUTUZUMAB [Suspect]
     Active Substance: OBINUTUZUMAB
     Route: 041
     Dates: start: 20210311, end: 20210311
  12. OBINUTUZUMAB [Suspect]
     Active Substance: OBINUTUZUMAB
     Route: 041
     Dates: start: 20210506, end: 20210506
  13. OBINUTUZUMAB [Suspect]
     Active Substance: OBINUTUZUMAB
     Route: 041
     Dates: start: 20210701, end: 20210701
  14. OBINUTUZUMAB [Suspect]
     Active Substance: OBINUTUZUMAB
     Route: 041
     Dates: start: 20210826, end: 20210826
  15. OBINUTUZUMAB [Suspect]
     Active Substance: OBINUTUZUMAB
     Route: 041
     Dates: start: 20211021, end: 20211021
  16. OBINUTUZUMAB [Suspect]
     Active Substance: OBINUTUZUMAB
     Route: 041
     Dates: start: 20211223, end: 20211223
  17. OBINUTUZUMAB [Suspect]
     Active Substance: OBINUTUZUMAB
     Route: 041
     Dates: start: 20220217, end: 20220217
  18. OBINUTUZUMAB [Suspect]
     Active Substance: OBINUTUZUMAB
     Route: 041
     Dates: start: 20220414, end: 20220414
  19. OBINUTUZUMAB [Suspect]
     Active Substance: OBINUTUZUMAB
     Route: 041
     Dates: start: 20220609, end: 20220609
  20. OBINUTUZUMAB [Suspect]
     Active Substance: OBINUTUZUMAB
     Route: 041
     Dates: start: 20220804
  21. BENDAMUSTINE HYDROCHLORIDE [Suspect]
     Active Substance: BENDAMUSTINE HYDROCHLORIDE
     Indication: Follicular lymphoma
     Dosage: DOSAGE IS UNCERTAIN.
     Route: 041
     Dates: start: 20200409
  22. BENDAMUSTINE HYDROCHLORIDE [Concomitant]
     Active Substance: BENDAMUSTINE HYDROCHLORIDE
     Indication: Follicular lymphoma
     Dosage: DOSAGE IS UNCERTAIN.
     Route: 041
     Dates: start: 20200409, end: 20200918

REACTIONS (2)
  - COVID-19 [Recovered/Resolved]
  - Infusion related reaction [Recovered/Resolved]

NARRATIVE: CASE EVENT DATE: 20200408
